FAERS Safety Report 9242093 (Version 1)
Quarter: 2013Q2

REPORT INFORMATION
  Report Type: Spontaneous
  Country: US (occurrence: US)
  Receive Date: 20130419
  Receipt Date: 20130419
  Transmission Date: 20140414
  Serious: Yes (Other)
  Sender: FDA-Public Use
  Company Number: US-JNJFOC-20130405787

PATIENT
  Sex: Female

DRUGS (1)
  1. BENADRYL [Suspect]
     Indication: HYPERSENSITIVITY
     Dosage: TAKING BENADRYL NIGHTLY FOR OVER 10 YEARS
     Route: 065

REACTIONS (2)
  - Brain injury [Unknown]
  - Memory impairment [Unknown]
